FAERS Safety Report 7316067-7 (Version None)
Quarter: 2011Q1

REPORT INFORMATION
  Report Type: 
  Country: None (occurrence: None)
  Receive Date: 20110225
  Receipt Date: 20110223
  Transmission Date: 20110831
  Serious: Yes (Other)
  Sender: FDA-Public Use
  Company Number: US-PFIZER INC-2011040053

PATIENT
  Sex: Male
  Weight: 88.435 kg

DRUGS (2)
  1. DILTIAZEM [Concomitant]
     Indication: ANGINA PECTORIS
     Dosage: UNK
  2. VIAGRA [Suspect]
     Indication: ERECTILE DYSFUNCTION
     Dosage: 100 MG, AS NEEDED
     Route: 048
     Dates: start: 20070101

REACTIONS (7)
  - VISUAL ACUITY REDUCED [None]
  - RED BLOOD CELL COUNT INCREASED [None]
  - RENAL FAILURE [None]
  - PROSTATE CANCER [None]
  - INFECTION [None]
  - HYPERTENSION [None]
  - CYANOPSIA [None]
